FAERS Safety Report 4847036-4 (Version None)
Quarter: 2005Q4

REPORT INFORMATION
  Report Type: 
  Country: None (occurrence: None)
  Receive Date: 20051207
  Receipt Date: 20051115
  Transmission Date: 20060501
  Serious: Yes (Hospitalization)
  Sender: FDA-Public Use
  Company Number: FR-ABBOTT-05P-056-0317337-00

PATIENT
  Age: 30 Year
  Sex: Male

DRUGS (3)
  1. PROFENID [Suspect]
     Indication: BACK PAIN
     Route: 048
     Dates: start: 20050910, end: 20050910
  2. ACETAMINOPHEN W/ PROPOXYPHENE HCL [Concomitant]
     Indication: BACK PAIN
     Route: 048
     Dates: start: 20050910, end: 20050910
  3. SPASFON [Concomitant]
     Indication: BACK PAIN
     Route: 048
     Dates: start: 20050910, end: 20050910

REACTIONS (1)
  - RENAL FAILURE ACUTE [None]
